FAERS Safety Report 24594954 (Version 1)
Quarter: 2024Q4

REPORT INFORMATION
  Report Type: Spontaneous
  Country: SK (occurrence: SK)
  Receive Date: 20241108
  Receipt Date: 20241108
  Transmission Date: 20250115
  Serious: Yes (Death)
  Sender: INCYTE
  Company Number: SK-002147023-NVSC2024SK215776

PATIENT

DRUGS (1)
  1. RUXOLITINIB [Suspect]
     Active Substance: RUXOLITINIB
     Indication: Maxillofacial pain
     Dosage: 20 MG
     Route: 065

REACTIONS (2)
  - Product use in unapproved indication [Unknown]
  - Acute myeloid leukaemia [Fatal]
